FAERS Safety Report 14308074 (Version 1)
Quarter: 2017Q4

REPORT INFORMATION
  Report Type: Spontaneous
  Country: US (occurrence: US)
  Receive Date: 20171220
  Receipt Date: 20171220
  Transmission Date: 20180321
  Serious: Yes (Hospitalization, Other)
  Sender: FDA-Public Use
  Company Number: US-WEST-WARD PHARMACEUTICALS CORP.-US-H14001-17-04958

PATIENT
  Age: 43 Year
  Sex: Male

DRUGS (2)
  1. MYCOPHENOLATE [Suspect]
     Active Substance: MYCOPHENOLIC ACID
     Indication: DERMATITIS CONTACT
     Dosage: ()
     Route: 065
  2. PREDNISONE. [Suspect]
     Active Substance: PREDNISONE
     Indication: DERMATITIS CONTACT
     Route: 048

REACTIONS (6)
  - Cellulitis [Unknown]
  - Pneumonia [Unknown]
  - Infection [Not Recovered/Not Resolved]
  - Molluscum contagiosum [Unknown]
  - Secondary immunodeficiency [Not Recovered/Not Resolved]
  - Lymphopenia [Not Recovered/Not Resolved]
